FAERS Safety Report 6030851-1 (Version None)
Quarter: 2009Q1

REPORT INFORMATION
  Report Type: 
  Country: None (occurrence: None)
  Receive Date: 20090106
  Receipt Date: 20081222
  Transmission Date: 20090719
  Serious: Yes (Other)
  Sender: FDA-Public Use
  Company Number: 2008S1022735

PATIENT
  Age: 37 Year
  Sex: Female
  Weight: 75 kg

DRUGS (2)
  1. DOXEPIN HCL [Suspect]
     Indication: DRUG USE FOR UNKNOWN INDICATION
     Dosage: ORAL
     Route: 048
  2. FUROSEMIDE (FUROSEMIDE) [Suspect]
     Indication: DRUG USE FOR UNKNOWN INDICATION
     Dosage: ORAL
     Route: 048

REACTIONS (2)
  - COMA [None]
  - MULTIPLE DRUG OVERDOSE INTENTIONAL [None]
